FAERS Safety Report 25423501 (Version 1)
Quarter: 2025Q2

REPORT INFORMATION
  Report Type: Spontaneous
  Country: US (occurrence: US)
  Receive Date: 20250611
  Receipt Date: 20250611
  Transmission Date: 20250716
  Serious: No
  Sender: SANDOZ
  Company Number: US-SANDOZ-SDZ2025US040324

PATIENT
  Age: 48 Year
  Sex: Female

DRUGS (1)
  1. ESTRADIOL [Suspect]
     Active Substance: ESTRADIOL
     Indication: Product used for unknown indication
     Dosage: 0.0375MG/24H 8TTS V1 (CHANGES TWICE A WEEK, ABOUT FOUR MONTHS)
     Route: 065

REACTIONS (3)
  - Poor quality product administered [Unknown]
  - Product dose omission issue [Unknown]
  - Product adhesion issue [Unknown]
